FAERS Safety Report 19592028 (Version 1)
Quarter: 2021Q3

REPORT INFORMATION
  Report Type: Spontaneous
  Country: PR (occurrence: PR)
  Receive Date: 20210722
  Receipt Date: 20210722
  Transmission Date: 20211014
  Serious: No
  Sender: FDA-Public Use
  Company Number: PR-JNJFOC-20210734682

PATIENT
  Sex: Male

DRUGS (1)
  1. SYMTUZA [Suspect]
     Active Substance: COBICISTAT\DARUNAVIR\EMTRICITABINE\TENOFOVIR ALAFENAMIDE
     Indication: HIV INFECTION
     Dosage: 1 DOSAGE FORM: 800MG DARUNAVIR,150 MG OF COBICISTAT,200 MG EMTRICITABINE,10 MG TENOFOVIR ALAFENAMIDE
     Route: 048

REACTIONS (1)
  - Abdominal pain upper [Unknown]
